FAERS Safety Report 8995949 (Version 1)
Quarter: 2013Q1

REPORT INFORMATION
  Report Type: Spontaneous
  Country: US (occurrence: US)
  Receive Date: 20130103
  Receipt Date: 20130103
  Transmission Date: 20140127
  Serious: Yes (Hospitalization, Other)
  Sender: FDA-Public Use
  Company Number: CHPA2012US025809

PATIENT
  Age: 67 Year
  Sex: Male

DRUGS (2)
  1. 4 WAY MENTHOLATED NASAL SPRAY [Suspect]
     Indication: NASAL CONGESTION
     Dosage: 2 SPRAYS EACH NOSTRIL, AS NEEDED
     Route: 045
     Dates: start: 2008, end: 201210
  2. 4 WAY FAST ACTING NASAL SPRAY [Suspect]
     Indication: NASAL CONGESTION
     Dosage: 2 SPRAYS EACH NOSTRIL, AS NEEDED
     Route: 045
     Dates: start: 201210

REACTIONS (2)
  - Cellulitis [Not Recovered/Not Resolved]
  - Lung neoplasm malignant [Not Recovered/Not Resolved]
